FAERS Safety Report 14839063 (Version 3)
Quarter: 2019Q1

REPORT INFORMATION
  Report Type: Spontaneous
  Country: US (occurrence: US)
  Receive Date: 20180502
  Receipt Date: 20190107
  Transmission Date: 20190417
  Serious: Yes (Other)
  Sender: FDA-Public Use
  Company Number: US-PFIZER INC-2018173096

PATIENT
  Age: 56 Year
  Sex: Male
  Weight: 83.91 kg

DRUGS (6)
  1. PAMELOR [Suspect]
     Active Substance: NORTRIPTYLINE HYDROCHLORIDE
     Dosage: UNK
  2. GEODON [Suspect]
     Active Substance: ZIPRASIDONE HYDROCHLORIDE\ZIPRASIDONE MESYLATE
     Indication: DEPRESSION
     Dosage: UNK
  3. CELEXA [Suspect]
     Active Substance: CITALOPRAM HYDROBROMIDE
     Dosage: UNK
  4. LEXAPRO [Suspect]
     Active Substance: ESCITALOPRAM OXALATE
     Dosage: UNK
  5. WELLBUTRIN [Suspect]
     Active Substance: BUPROPION HYDROCHLORIDE
     Indication: DEPRESSION
     Dosage: UNK
     Dates: start: 1994, end: 1997
  6. LEXAPRO [Suspect]
     Active Substance: ESCITALOPRAM OXALATE
     Dosage: UNK
     Dates: start: 2001, end: 2008

REACTIONS (7)
  - Suicidal ideation [Unknown]
  - Drug metabolising enzyme test abnormal [Unknown]
  - Dyskinesia [Unknown]
  - Nausea [Unknown]
  - Tic [Unknown]
  - Malaise [Recovered/Resolved]
  - CYP2D6 polymorphism [Unknown]

NARRATIVE: CASE EVENT DATE: 2008
